FAERS Safety Report 16167553 (Version 2)
Quarter: 2020Q3

REPORT INFORMATION
  Report Type: Other
  Country: US (occurrence: US)
  Receive Date: 20190408
  Receipt Date: 20200715
  Transmission Date: 20201102
  Serious: Yes (Other)
  Sender: FDA-Public Use
  Company Number: US-ROCHE-2294873

PATIENT
  Age: 63 Year
  Sex: Male
  Weight: 67.65 kg

DRUGS (8)
  1. OCREVUS [Suspect]
     Active Substance: OCRELIZUMAB
     Indication: SECONDARY PROGRESSIVE MULTIPLE SCLEROSIS
     Dosage: DATE OF TREATMENT: 11/NOV/2019, 05/APR/2019
     Route: 042
     Dates: start: 20190322
  2. CARBAMAZEPINE. [Concomitant]
     Active Substance: CARBAMAZEPINE
     Dosage: BEDTIME ;ONGOING: YES
  3. PREDNISONE. [Concomitant]
     Active Substance: PREDNISONE
     Dosage: TAKEN PRIOR TO OCREVUS INFUSION
  4. VITAMIN D3 [Concomitant]
     Active Substance: CHOLECALCIFEROL
     Dosage: BEDTIME ;ONGOING: YES
  5. SIMVASTATIN. [Concomitant]
     Active Substance: SIMVASTATIN
     Dosage: AT NIGHT ;ONGOING: YES
  6. OCREVUS [Suspect]
     Active Substance: OCRELIZUMAB
     Route: 042
  7. MELATONIN [Concomitant]
     Active Substance: MELATONIN
     Dosage: 3 MG PILLS HE TAKES 4 OF THEM AT BEDTIME ;ONGOING: YES
  8. BABY ASPIRIN [Concomitant]
     Active Substance: ASPIRIN
     Dosage: YES

REACTIONS (6)
  - Intentional product use issue [Unknown]
  - Off label use [Unknown]
  - Sialoadenitis [Not Recovered/Not Resolved]
  - Influenza [Recovering/Resolving]
  - Malaise [Recovering/Resolving]
  - Pain in jaw [Not Recovered/Not Resolved]

NARRATIVE: CASE EVENT DATE: 20190323
